FAERS Safety Report 7058407-2 (Version None)
Quarter: 2010Q4

REPORT INFORMATION
  Report Type: 
  Country: None (occurrence: None)
  Receive Date: 20101022
  Receipt Date: 20101015
  Transmission Date: 20110411
  Serious: No
  Sender: FDA-Public Use
  Company Number: US-PFIZER INC-2010131553

PATIENT
  Sex: Female
  Weight: 71.655 kg

DRUGS (10)
  1. LIPITOR [Suspect]
     Indication: BLOOD CHOLESTEROL INCREASED
     Dosage: 20 MG, 1X/DAY
     Route: 048
     Dates: start: 20100917
  2. LIPITOR [Suspect]
     Indication: BLOOD TRIGLYCERIDES INCREASED
  3. CRESTOR [Suspect]
     Indication: BLOOD CHOLESTEROL INCREASED
     Dosage: UNK
     Route: 048
     Dates: start: 20100101, end: 20100101
  4. CRESTOR [Suspect]
     Indication: BLOOD TRIGLYCERIDES INCREASED
  5. NEXIUM [Concomitant]
     Indication: GASTROOESOPHAGEAL REFLUX DISEASE
     Dosage: 40 MG, 1X/DAY
     Route: 048
  6. ZOLOFT [Concomitant]
     Indication: STRESS
     Dosage: 100 MG, 1X/DAY
     Route: 048
  7. ZOLOFT [Concomitant]
     Indication: MENOPAUSE
  8. VENTOLIN [Concomitant]
     Indication: ASTHMA
     Dosage: 90 UG, AS NEEDED
     Route: 055
  9. ALPRAZOLAM [Concomitant]
     Indication: STRESS
     Dosage: 25 MG, AS NEEDED
     Route: 048
  10. ALPRAZOLAM [Concomitant]
     Indication: MENOPAUSE

REACTIONS (3)
  - ANXIETY [None]
  - INSOMNIA [None]
  - VIRAL INFECTION [None]
